FAERS Safety Report 7578631-X (Version None)
Quarter: 2011Q2

REPORT INFORMATION
  Report Type: 
  Country: None (occurrence: None)
  Receive Date: 20110628
  Receipt Date: 20110615
  Transmission Date: 20111010
  Serious: Yes (Other)
  Sender: FDA-Public Use
  Company Number: PHHY2011JP30986

PATIENT
  Age: 14 Year
  Sex: Male

DRUGS (2)
  1. NEORAL [Suspect]
     Indication: SYSTEMIC LUPUS ERYTHEMATOSUS
     Dosage: 270 MG, UNK
     Route: 048
  2. NEORAL [Suspect]
     Dosage: 200 MG

REACTIONS (5)
  - BLOOD LACTATE DEHYDROGENASE INCREASED [None]
  - BLOOD BILIRUBIN INCREASED [None]
  - ASPARTATE AMINOTRANSFERASE INCREASED [None]
  - HAEMOLYTIC ANAEMIA [None]
  - ALANINE AMINOTRANSFERASE INCREASED [None]
